FAERS Safety Report 14141716 (Version 1)
Quarter: 2017Q4

REPORT INFORMATION
  Report Type: Spontaneous
  Country: JP (occurrence: JP)
  Receive Date: 20171030
  Receipt Date: 20171030
  Transmission Date: 20180321
  Serious: Yes (Other)
  Sender: FDA-Public Use
  Company Number: JP-GLAXOSMITHKLINE-JP2017JPN163276

PATIENT
  Sex: Male

DRUGS (1)
  1. ALLERMIST [Suspect]
     Active Substance: FLUTICASONE FUROATE
     Indication: NASAL INFLAMMATION
     Dosage: UNK, QD
     Route: 045
     Dates: start: 2017

REACTIONS (3)
  - Oesophageal candidiasis [Unknown]
  - Feeling abnormal [Unknown]
  - Product use in unapproved indication [Unknown]
